FAERS Safety Report 17857707 (Version 12)
Quarter: 2020Q4

REPORT INFORMATION
  Report Type: Spontaneous
  Country: CA (occurrence: CA)
  Receive Date: 20200604
  Receipt Date: 20201228
  Transmission Date: 20210113
  Serious: Yes (Other)
  Sender: FDA-Public Use
  Company Number: CA-CELLTRION INC.-2019CA028054

PATIENT

DRUGS (9)
  1. IMURAN [Concomitant]
     Active Substance: AZATHIOPRINE
     Dosage: 150 MG
  2. INFLECTRA [Suspect]
     Active Substance: INFLIXIMAB-DYYB
     Dosage: 400 MG, EVERY 6 WEEKS
     Route: 042
     Dates: start: 20200710
  3. INFLECTRA [Suspect]
     Active Substance: INFLIXIMAB-DYYB
     Dosage: 400 MG, EVERY 6 WEEKS
     Route: 042
     Dates: start: 20200820
  4. INFLECTRA [Suspect]
     Active Substance: INFLIXIMAB-DYYB
     Dosage: 400 MG, EVERY 6 WEEKS
     Route: 042
     Dates: start: 20200529
  5. INFLECTRA [Suspect]
     Active Substance: INFLIXIMAB-DYYB
     Dosage: 400 MG, EVERY 6 WEEKS
     Route: 042
     Dates: start: 20200417
  6. CORTIMENT [BUDESONIDE] [Concomitant]
     Active Substance: BUDESONIDE
     Dosage: 9 MG
  7. INFLECTRA [Suspect]
     Active Substance: INFLIXIMAB-DYYB
     Indication: COLITIS ULCERATIVE
     Dosage: 400 MG, EVERY 6 WEEKS
     Route: 042
     Dates: start: 20200124, end: 20200820
  8. INFLECTRA [Suspect]
     Active Substance: INFLIXIMAB-DYYB
     Dosage: 800 MG EVERY 6 WEEKS
     Route: 042
     Dates: start: 20200930, end: 20200930
  9. MEZAVANT [Concomitant]
     Active Substance: MESALAMINE
     Dosage: 1.2 G X4

REACTIONS (7)
  - Colitis ulcerative [Unknown]
  - Heart rate decreased [Unknown]
  - Condition aggravated [Unknown]
  - Therapeutic product effect incomplete [Unknown]
  - Off label use [Unknown]
  - Off label use [Unknown]
  - Drug level above therapeutic [Unknown]

NARRATIVE: CASE EVENT DATE: 20200124
